FAERS Safety Report 19125085 (Version 1)
Quarter: 2021Q2

REPORT INFORMATION
  Report Type: Spontaneous
  Country: ES (occurrence: ES)
  Receive Date: 20210412
  Receipt Date: 20210412
  Transmission Date: 20210717
  Serious: Yes (Other)
  Sender: FDA-Public Use
  Company Number: ES-PFIZER INC-2021348345

PATIENT
  Age: 75 Year
  Sex: Male
  Weight: 89 kg

DRUGS (3)
  1. DOBUTAMINE HCL [Suspect]
     Active Substance: DOBUTAMINE HYDROCHLORIDE
     Indication: CARDIAC OPERATION
     Dosage: UNK
     Route: 042
     Dates: start: 20201111, end: 20201111
  2. NORADRENALINA NORMON [Concomitant]
     Indication: CARDIAC OPERATION
     Dosage: UNK
     Route: 042
     Dates: start: 20201111, end: 20201111
  3. TRANEXAMIC ACID. [Suspect]
     Active Substance: TRANEXAMIC ACID
     Indication: CARDIAC OPERATION
     Dosage: UNK
     Route: 042
     Dates: start: 20201111, end: 20201111

REACTIONS (2)
  - Myoclonus [Recovered/Resolved]
  - Off label use [Unknown]

NARRATIVE: CASE EVENT DATE: 20201111
